FAERS Safety Report 13430139 (Version 1)
Quarter: 2017Q2

REPORT INFORMATION
  Report Type: Spontaneous
  Country: CN (occurrence: CN)
  Receive Date: 20170412
  Receipt Date: 20170412
  Transmission Date: 20170830
  Serious: Yes (Other)
  Sender: FDA-Public Use
  Company Number: CN-ACCORD-050136

PATIENT
  Age: 34 Year
  Sex: Female

DRUGS (1)
  1. METHOTREXATE. [Suspect]
     Active Substance: METHOTREXATE
     Indication: CHEMOTHERAPY
     Dosage: DOSE: 20 MG/DAY
     Route: 030

REACTIONS (4)
  - Alanine aminotransferase increased [Unknown]
  - Bone marrow failure [Unknown]
  - Decreased appetite [Unknown]
  - Mouth ulceration [Unknown]
